FAERS Safety Report 9732140 (Version 2)
Quarter: 2013Q4

REPORT INFORMATION
  Report Type: Spontaneous
  Country: US (occurrence: US)
  Receive Date: 20131205
  Receipt Date: 20131205
  Transmission Date: 20140711
  Serious: Yes (Other)
  Sender: FDA-Public Use
  Company Number: US-ASTELLAS-2013US011120

PATIENT
  Age: 77 Year
  Sex: Female

DRUGS (2)
  1. MYRBETRIQ [Suspect]
     Indication: ENURESIS
     Dosage: 25 MG, UID/QD
     Route: 048
     Dates: start: 20131013
  2. MYRBETRIQ [Suspect]
     Indication: NOCTURIA

REACTIONS (2)
  - Drug ineffective for unapproved indication [Unknown]
  - Blood pressure fluctuation [Unknown]
